FAERS Safety Report 21045412 (Version 3)
Quarter: 2022Q3

REPORT INFORMATION
  Report Type: Report from Study
  Country: US (occurrence: US)
  Receive Date: 20220706
  Receipt Date: 20220803
  Transmission Date: 20221026
  Serious: Yes (Death, Other)
  Sender: FDA-Public Use
  Company Number: US-NOVARTISTESTPH-NVSC2022US149660

PATIENT
  Sex: Female

DRUGS (2)
  1. GLEEVEC [Suspect]
     Active Substance: IMATINIB MESYLATE
     Indication: Philadelphia positive chronic myeloid leukaemia
     Dosage: UNK
     Route: 048
  2. SCEMBLIX [Suspect]
     Active Substance: ASCIMINIB HYDROCHLORIDE
     Indication: Philadelphia positive chronic myeloid leukaemia
     Dosage: 80 MG, QD
     Route: 048

REACTIONS (10)
  - Death [Fatal]
  - Intestinal haemorrhage [Unknown]
  - Drug ineffective [Unknown]
  - Product use complaint [Unknown]
  - Intestinal mucosal tear [Unknown]
  - Asthenia [Unknown]
  - Oral mucosal exfoliation [Unknown]
  - Rash [Unknown]
  - Confusional state [Unknown]
  - Oral mucosal discolouration [Unknown]
